FAERS Safety Report 15486685 (Version 1)
Quarter: 2018Q4

REPORT INFORMATION
  Report Type: Spontaneous
  Country: US (occurrence: US)
  Receive Date: 20181011
  Receipt Date: 20181011
  Transmission Date: 20190205
  Serious: Yes (Death, Other)
  Sender: FDA-Public Use
  Company Number: US-BRISTOL-MYERS SQUIBB COMPANY-BMS-2018-092735

PATIENT
  Age: 6 Year
  Sex: Male

DRUGS (1)
  1. DASATINIB. [Suspect]
     Active Substance: DASATINIB
     Indication: LEUKAEMIA
     Dosage: 60 MG/M2, UNK
     Route: 065

REACTIONS (4)
  - Leukocytosis [Unknown]
  - Malignant neoplasm progression [Fatal]
  - Klebsiella bacteraemia [Unknown]
  - Pyrexia [Unknown]
